FAERS Safety Report 23935517 (Version 1)
Quarter: 2024Q2

REPORT INFORMATION
  Report Type: Report from Study
  Country: US (occurrence: US)
  Receive Date: 20240604
  Receipt Date: 20240604
  Transmission Date: 20240715
  Serious: Yes (Hospitalization)
  Sender: FDA-Public Use
  Company Number: US-JAZZ PHARMACEUTICALS-2024-US-008457

PATIENT
  Sex: Male

DRUGS (4)
  1. EPIDIOLEX [Suspect]
     Active Substance: CANNABIDIOL
     Indication: Tuberous sclerosis complex
     Dosage: 13 MILLILITER, BID
     Route: 048
     Dates: start: 202305
  2. EPIDIOLEX [Suspect]
     Active Substance: CANNABIDIOL
     Indication: Brain neoplasm
  3. EVEROLIMUS [Concomitant]
     Active Substance: EVEROLIMUS
     Indication: Tuberous sclerosis complex
     Dosage: UNK
  4. EVEROLIMUS [Concomitant]
     Active Substance: EVEROLIMUS
     Indication: Brain neoplasm

REACTIONS (2)
  - Hospitalisation [Unknown]
  - Product administration interrupted [Unknown]
